FAERS Safety Report 25496124 (Version 2)
Quarter: 2025Q3

REPORT INFORMATION
  Report Type: Spontaneous
  Country: EU (occurrence: EU)
  Receive Date: 20250630
  Receipt Date: 20250709
  Transmission Date: 20251021
  Serious: Yes (Death, Other)
  Sender: MYLAN
  Company Number: EU-ADIENNEP-2019AD000481

PATIENT
  Age: 49 Year
  Sex: Female

DRUGS (32)
  1. BUSULFAN [Suspect]
     Active Substance: BUSULFAN
     Indication: Allogenic stem cell transplantation
  2. BUSULFAN [Suspect]
     Active Substance: BUSULFAN
     Route: 065
  3. BUSULFAN [Suspect]
     Active Substance: BUSULFAN
     Route: 065
  4. BUSULFAN [Suspect]
     Active Substance: BUSULFAN
  5. FLUDARABINE [Suspect]
     Active Substance: FLUDARABINE PHOSPHATE
     Indication: Allogenic stem cell transplantation
  6. FLUDARABINE [Suspect]
     Active Substance: FLUDARABINE PHOSPHATE
     Route: 065
  7. FLUDARABINE [Suspect]
     Active Substance: FLUDARABINE PHOSPHATE
     Route: 065
  8. FLUDARABINE [Suspect]
     Active Substance: FLUDARABINE PHOSPHATE
  9. MYCOPHENOLATE MOFETIL [Suspect]
     Active Substance: MYCOPHENOLATE MOFETIL
     Indication: Prophylaxis against graft versus host disease
  10. MYCOPHENOLATE MOFETIL [Suspect]
     Active Substance: MYCOPHENOLATE MOFETIL
     Route: 065
  11. MYCOPHENOLATE MOFETIL [Suspect]
     Active Substance: MYCOPHENOLATE MOFETIL
     Route: 065
  12. MYCOPHENOLATE MOFETIL [Suspect]
     Active Substance: MYCOPHENOLATE MOFETIL
  13. VALGANCICLOVIR [Suspect]
     Active Substance: VALGANCICLOVIR
     Indication: Cytomegalovirus infection reactivation
  14. VALGANCICLOVIR [Suspect]
     Active Substance: VALGANCICLOVIR
     Route: 065
  15. VALGANCICLOVIR [Suspect]
     Active Substance: VALGANCICLOVIR
     Route: 065
  16. VALGANCICLOVIR [Suspect]
     Active Substance: VALGANCICLOVIR
  17. THIOTEPA [Suspect]
     Active Substance: THIOTEPA
     Indication: Allogenic stem cell transplantation
  18. THIOTEPA [Suspect]
     Active Substance: THIOTEPA
     Route: 065
  19. THIOTEPA [Suspect]
     Active Substance: THIOTEPA
     Route: 065
  20. THIOTEPA [Suspect]
     Active Substance: THIOTEPA
  21. CYCLOSPORINE [Suspect]
     Active Substance: CYCLOSPORINE
     Indication: Prophylaxis against graft versus host disease
  22. CYCLOSPORINE [Suspect]
     Active Substance: CYCLOSPORINE
  23. CYCLOPHOSPHAMIDE [Suspect]
     Active Substance: CYCLOPHOSPHAMIDE
     Indication: Prophylaxis against graft versus host disease
  24. CYCLOPHOSPHAMIDE [Suspect]
     Active Substance: CYCLOPHOSPHAMIDE
     Route: 065
  25. CYCLOPHOSPHAMIDE [Suspect]
     Active Substance: CYCLOPHOSPHAMIDE
     Route: 065
  26. CYCLOPHOSPHAMIDE [Suspect]
     Active Substance: CYCLOPHOSPHAMIDE
  27. FOSCARNET [Suspect]
     Active Substance: FOSCARNET
     Indication: Cytomegalovirus infection reactivation
  28. FOSCARNET [Suspect]
     Active Substance: FOSCARNET
     Route: 065
  29. FOSCARNET [Suspect]
     Active Substance: FOSCARNET
     Route: 065
  30. FOSCARNET [Suspect]
     Active Substance: FOSCARNET
  31. ELTROMBOPAG [Concomitant]
     Active Substance: ELTROMBOPAG
     Indication: Thrombocytopenia
  32. ELTROMBOPAG [Concomitant]
     Active Substance: ELTROMBOPAG

REACTIONS (6)
  - Toxoplasmosis [Fatal]
  - Cerebral toxoplasmosis [Fatal]
  - Transplant dysfunction [Not Recovered/Not Resolved]
  - Acute graft versus host disease [Unknown]
  - Chronic graft versus host disease [Unknown]
  - Cytomegalovirus infection reactivation [Unknown]
